FAERS Safety Report 12980527 (Version 1)
Quarter: 2016Q4

REPORT INFORMATION
  Report Type: Spontaneous
  Country: US (occurrence: US)
  Receive Date: 20161128
  Receipt Date: 20161128
  Transmission Date: 20170207
  Serious: Yes (Hospitalization, Other)
  Sender: FDA-Public Use
  Company Number: US-SUNOVION-2016SUN002937

PATIENT
  Sex: Female

DRUGS (2)
  1. GABAPENTIN. [Concomitant]
     Active Substance: GABAPENTIN
     Dosage: UNK, QD
     Route: 048
  2. LATUDA [Suspect]
     Active Substance: LURASIDONE HYDROCHLORIDE
     Indication: BIPOLAR DISORDER
     Dosage: 60 MG, UNK
     Route: 048

REACTIONS (2)
  - Loss of consciousness [Recovered/Resolved]
  - Hypertension [Recovered/Resolved]
